FAERS Safety Report 12311918 (Version 3)
Quarter: 2018Q3

REPORT INFORMATION
  Report Type: Report from Study
  Country: US (occurrence: US)
  Receive Date: 20160427
  Receipt Date: 20180925
  Transmission Date: 20181010
  Serious: Yes (Other)
  Sender: FDA-Public Use
  Company Number: PHEH2016US010400

PATIENT
  Sex: Female
  Weight: 56.24 kg

DRUGS (1)
  1. GILENYA [Suspect]
     Active Substance: FINGOLIMOD HYDROCHLORIDE
     Indication: MULTIPLE SCLEROSIS
     Dosage: 0.5 MG, QD
     Route: 048
     Dates: end: 201510

REACTIONS (4)
  - Multiple sclerosis relapse [Unknown]
  - Dysgraphia [Unknown]
  - Hypoaesthesia [Unknown]
  - Paraesthesia [Unknown]
